FAERS Safety Report 9123199 (Version 1)
Quarter: 2013Q1

REPORT INFORMATION
  Report Type: Spontaneous
  Country: US (occurrence: US)
  Receive Date: 20130227
  Receipt Date: 20130227
  Transmission Date: 20140127
  Serious: No
  Sender: FDA-Public Use
  Company Number: US-GLAXOSMITHKLINE-A0995149A

PATIENT
  Age: 67 Year
  Sex: 0

DRUGS (1)
  1. MELPHALAN [Suspect]
     Route: 065

REACTIONS (1)
  - Respiratory tract congestion [Unknown]
